FAERS Safety Report 8864175 (Version 1)
Quarter: 2012Q4

REPORT INFORMATION
  Report Type: 
  Country: US (occurrence: US)
  Receive Date: 20121024
  Receipt Date: 20121024
  Transmission Date: 20130627
  Serious: No
  Sender: FDA-Public Use
  Company Number: US-AMGEN-USASP2011066031

PATIENT
  Age: 42 Year
  Sex: Female
  Weight: 36.28 kg

DRUGS (6)
  1. ENBREL [Suspect]
     Indication: PRODUCT USED FOR UNKNOWN INDICATION
     Dosage: 50 mg, qwk
  2. XYZAL [Concomitant]
     Dosage: 5 mg, UNK
  3. MELOXCAM [Concomitant]
     Dosage: 7.5 mg, UNK
  4. OMEPRAZOLE [Concomitant]
     Dosage: 20 mg, UNK
  5. METHOCARBAMOL [Concomitant]
     Dosage: 500 mg, UNK
  6. AMITRIPTYLINE [Concomitant]
     Dosage: 50 mg, UNK

REACTIONS (1)
  - Sinusitis [Unknown]
